FAERS Safety Report 10334668 (Version 2)
Quarter: 2014Q3

REPORT INFORMATION
  Report Type: Spontaneous
  Country: US (occurrence: US)
  Receive Date: 20140723
  Receipt Date: 20140801
  Transmission Date: 20150326
  Serious: No
  Sender: FDA-Public Use
  Company Number: US-PFIZER INC-2014204503

PATIENT
  Age: 66 Year
  Sex: Female
  Weight: 62.1 kg

DRUGS (2)
  1. PREMARIN [Suspect]
     Active Substance: ESTROGENS, CONJUGATED
     Indication: BLADDER PROLAPSE
  2. PREMARIN [Suspect]
     Active Substance: ESTROGENS, CONJUGATED
     Indication: ATROPHIC VULVOVAGINITIS
     Dosage: 1.5 G, SINGLE (ONCE AT NIGHT)
     Route: 067
     Dates: start: 20140718, end: 20140718

REACTIONS (3)
  - Vulvovaginal burning sensation [Recovered/Resolved]
  - Insomnia [Recovered/Resolved]
  - Vulvovaginal pain [Recovered/Resolved]

NARRATIVE: CASE EVENT DATE: 20140718
